FAERS Safety Report 15359065 (Version 1)
Quarter: 2018Q3

REPORT INFORMATION
  Report Type: Report from Study
  Country: US (occurrence: US)
  Receive Date: 20180906
  Receipt Date: 20180906
  Transmission Date: 20181010
  Serious: Yes (Other)
  Sender: FDA-Public Use
  Company Number: US-BRISTOL-MYERS SQUIBB COMPANY-BMS-2018-081940

PATIENT
  Age: 29 Year
  Sex: Male

DRUGS (2)
  1. LIRILUMAB [Suspect]
     Active Substance: LIRILUMAB
     Indication: HODGKIN^S DISEASE
     Dosage: 3 MG/KG, Q4WK
     Route: 065
  2. NIVOLUMAB [Suspect]
     Active Substance: NIVOLUMAB
     Indication: HODGKIN^S DISEASE
     Dosage: 3 MG/KG, Q2WK
     Route: 065

REACTIONS (1)
  - Pulmonary granuloma [Unknown]
